FAERS Safety Report 9752707 (Version 1)
Quarter: 2013Q4

REPORT INFORMATION
  Report Type: Spontaneous
  Country: GB (occurrence: None)
  Receive Date: 20131211
  Receipt Date: 20131211
  Transmission Date: 20140711
  Serious: Yes (Other)
  Sender: FDA-Public Use
  Company Number: AUR-APL-2013-01543

PATIENT
  Age: 41 Year
  Sex: Female
  Weight: 85.2 kg

DRUGS (1)
  1. LAMOTRIGINE [Suspect]
     Indication: MIGRAINE
     Route: 048
     Dates: start: 20121224, end: 20130114

REACTIONS (6)
  - Drug reaction with eosinophilia and systemic symptoms [None]
  - Rash [None]
  - Pyrexia [None]
  - Lymphadenopathy [None]
  - Tenderness [None]
  - Pruritus [None]
